FAERS Safety Report 4857774-5 (Version None)
Quarter: 2005Q4

REPORT INFORMATION
  Report Type: 
  Country: None (occurrence: None)
  Receive Date: 20051219
  Receipt Date: 20050404
  Transmission Date: 20060501
  Serious: No
  Sender: FDA-Public Use
  Company Number: US-GLAXOSMITHKLINE-A0552550A

PATIENT
  Age: 44 Year

DRUGS (1)
  1. EQUATE NTS 7MG [Suspect]
     Dates: end: 20050401

REACTIONS (6)
  - ANXIETY [None]
  - DRUG INEFFECTIVE [None]
  - INTENTIONAL DRUG MISUSE [None]
  - IRRITABILITY [None]
  - NICOTINE DEPENDENCE [None]
  - TREMOR [None]
